FAERS Safety Report 7965762-5 (Version None)
Quarter: 2011Q4

REPORT INFORMATION
  Report Type: 
  Country: None (occurrence: None)
  Receive Date: 20111208
  Receipt Date: 20111128
  Transmission Date: 20120403
  Serious: Yes (Hospitalization, Other)
  Sender: FDA-Public Use
  Company Number: US-ELI_LILLY_AND_COMPANY-US201111009096

PATIENT
  Sex: Female

DRUGS (5)
  1. HUMALOG [Suspect]
     Indication: DIABETES MELLITUS
     Dosage: UNK, PRN
  2. HUMALOG [Suspect]
     Dosage: UNK, PRN
     Dates: start: 19990101
  3. HUMALOG [Suspect]
     Dosage: 12 U, PRN
  4. HUMALOG [Suspect]
     Dosage: 8 U, PRN
  5. LANTUS [Concomitant]
     Dosage: UNK

REACTIONS (2)
  - BLOOD GLUCOSE INCREASED [None]
  - CARDIAC OPERATION [None]
